FAERS Safety Report 23526055 (Version 1)
Quarter: 2024Q1

REPORT INFORMATION
  Report Type: Spontaneous
  Country: JP (occurrence: JP)
  Receive Date: 20240215
  Receipt Date: 20240215
  Transmission Date: 20240410
  Serious: Yes (Hospitalization, Other)
  Sender: FDA-Public Use
  Company Number: JP-BAXTER-2024BAX010310

PATIENT
  Sex: Male

DRUGS (2)
  1. REGUNEAL LCA [Suspect]
     Active Substance: CALCIUM CHLORIDE\DEXTROSE MONOHYDRATE\HYDROCHLORIC ACID\MAGNESIUM CHLORIDE\SODIUM BICARBONATE\SODIUM
     Indication: Peritoneal dialysis
     Dosage: 5 BAGS OF 2500 ML DAILY (7 DAYS A WEEK)
     Route: 033
     Dates: start: 20230214
  2. REGUNEAL LCA [Suspect]
     Active Substance: CALCIUM CHLORIDE\DEXTROSE MONOHYDRATE\HYDROCHLORIC ACID\MAGNESIUM CHLORIDE\SODIUM BICARBONATE\SODIUM
     Dosage: 3 BAGS OF 2500 ML DAILY (5 DAYS A WEEK) AROUND FALL OF 2023
     Route: 033
     Dates: start: 2023

REACTIONS (2)
  - Cardiac failure [Not Recovered/Not Resolved]
  - Cardiac dysfunction [Unknown]

NARRATIVE: CASE EVENT DATE: 20240107
